FAERS Safety Report 10285711 (Version 5)
Quarter: 2015Q4

REPORT INFORMATION
  Report Type: Report from Study
  Country: US (occurrence: US)
  Receive Date: 20140709
  Receipt Date: 20151119
  Transmission Date: 20160304
  Serious: Yes (Hospitalization, Other)
  Sender: FDA-Public Use
  Company Number: US-BIOGENIDEC-2014BI053707

PATIENT
  Age: 37 Year
  Sex: Female

DRUGS (12)
  1. TECFIDERA [Suspect]
     Active Substance: DIMETHYL FUMARATE
     Indication: MULTIPLE SCLEROSIS
     Route: 048
     Dates: start: 20140522, end: 20140604
  2. NORVASC [Concomitant]
     Active Substance: AMLODIPINE BESYLATE
  3. SYNTHROID [Concomitant]
     Active Substance: LEVOTHYROXINE SODIUM
  4. VALTREX [Concomitant]
     Active Substance: VALACYCLOVIR HYDROCHLORIDE
  5. GABAPENTIN. [Concomitant]
     Active Substance: GABAPENTIN
  6. HYDROCHLOROTHIAZIDE. [Concomitant]
     Active Substance: HYDROCHLOROTHIAZIDE
  7. TECFIDERA [Suspect]
     Active Substance: DIMETHYL FUMARATE
     Indication: MULTIPLE SCLEROSIS
  8. LITHIUM CARBONATE. [Concomitant]
     Active Substance: LITHIUM CARBONATE
     Indication: RENAL DISORDER
  9. WELLBUTRIN SR [Concomitant]
     Active Substance: BUPROPION HYDROCHLORIDE
  10. PRELIEF [Concomitant]
     Active Substance: CALCIUM GLYCEROPHOSPHATE
  11. VITAMIN D [Concomitant]
     Active Substance: CHOLECALCIFEROL
  12. TECFIDERA [Suspect]
     Active Substance: DIMETHYL FUMARATE
     Indication: MULTIPLE SCLEROSIS
     Route: 048
     Dates: start: 201405, end: 201405

REACTIONS (20)
  - Myocardial infarction [Unknown]
  - Erythema [Unknown]
  - Cardiac failure [Unknown]
  - Haematotoxicity [Unknown]
  - Diarrhoea [Recovered/Resolved]
  - Pruritus [Recovered/Resolved]
  - Weight decreased [Not Recovered/Not Resolved]
  - Insomnia [Unknown]
  - Heart rate decreased [Recovered/Resolved]
  - Back pain [Unknown]
  - Prescribed underdose [Recovered/Resolved]
  - Photosensitivity reaction [Unknown]
  - Asthenia [Unknown]
  - Vision blurred [Unknown]
  - Nausea [Recovered/Resolved]
  - Decreased appetite [Unknown]
  - Hot flush [Recovered/Resolved]
  - Vomiting [Recovered/Resolved]
  - Renal failure [Recovered/Resolved]
  - Chromaturia [Recovered/Resolved]

NARRATIVE: CASE EVENT DATE: 201405
